FAERS Safety Report 8698905 (Version 2)
Quarter: 2014Q2

REPORT INFORMATION
  Report Type: Report from Study
  Country: US (occurrence: US)
  Receive Date: 20120802
  Receipt Date: 20140423
  Transmission Date: 20141212
  Serious: Yes (Hospitalization)
  Sender: FDA-Public Use
  Company Number: US-ROCHE-1093834

PATIENT
  Sex: Female
  Weight: 49.03 kg

DRUGS (5)
  1. CELLCEPT [Suspect]
     Indication: PEMPHIGOID
     Route: 048
  2. CELLCEPT [Suspect]
     Route: 048
     Dates: start: 20111215
  3. CELLCEPT [Suspect]
     Route: 048
     Dates: start: 20121219
  4. CLOBETASOL PROPIONATE [Concomitant]
     Indication: PEMPHIGOID
     Route: 061
  5. TRIAMCINOLONE ACETONIDE [Concomitant]
     Indication: PEMPHIGOID
     Route: 061

REACTIONS (3)
  - Fall [Unknown]
  - Hip fracture [Unknown]
  - Pemphigoid [Recovering/Resolving]
